FAERS Safety Report 12945827 (Version 1)
Quarter: 2016Q4

REPORT INFORMATION
  Report Type: Spontaneous
  Country: CA (occurrence: CA)
  Receive Date: 20161116
  Receipt Date: 20161116
  Transmission Date: 20170207
  Serious: Yes (Other)
  Sender: FDA-Public Use
  Company Number: CA-PFIZER INC-2016476036

PATIENT
  Age: 67 Year
  Sex: Female
  Weight: 88 kg

DRUGS (3)
  1. CHAMPIX [Suspect]
     Active Substance: VARENICLINE TARTRATE
     Dosage: 0.5 MG, 2X/DAY
     Route: 048
     Dates: end: 20160804
  2. ASA [Concomitant]
     Active Substance: ASPIRIN
  3. CHAMPIX [Suspect]
     Active Substance: VARENICLINE TARTRATE
     Indication: SMOKING CESSATION THERAPY
     Dosage: 0.5 MG, 1X/DAY
     Route: 048
     Dates: start: 20160728

REACTIONS (7)
  - Stevens-Johnson syndrome [Recovered/Resolved]
  - Ecchymosis [Recovered/Resolved]
  - Pruritus [Recovered/Resolved]
  - Drug hypersensitivity [Recovered/Resolved]
  - Toxic epidermal necrolysis [Recovered/Resolved]
  - Urticaria [Recovered/Resolved]
  - Erythema multiforme [Recovered/Resolved]
